FAERS Safety Report 13456900 (Version 2)
Quarter: 2017Q2

REPORT INFORMATION
  Report Type: Spontaneous
  Country: BE (occurrence: BE)
  Receive Date: 20170419
  Receipt Date: 20170419
  Transmission Date: 20170830
  Serious: Yes (Life-Threatening, Hospitalization, Disabling, Other)
  Sender: FDA-Public Use
  Company Number: BE-JNJFOC-20170417367

PATIENT
  Age: 74 Year
  Sex: Male
  Weight: 80 kg

DRUGS (3)
  1. TAMSULOSIN [Concomitant]
     Active Substance: TAMSULOSIN
     Indication: BENIGN PROSTATIC HYPERPLASIA
     Route: 065
  2. SOTALEX [Concomitant]
     Active Substance: SOTALOL
     Indication: ATRIAL FIBRILLATION
     Route: 048
  3. XARELTO [Suspect]
     Active Substance: RIVAROXABAN
     Indication: ATRIAL FIBRILLATION
     Route: 048
     Dates: start: 20161027

REACTIONS (11)
  - Decubitus ulcer [Unknown]
  - Cerebrovascular accident [Recovered/Resolved with Sequelae]
  - Hemiplegia [Recovered/Resolved with Sequelae]
  - Coma [Unknown]
  - Bedridden [Unknown]
  - Weight decreased [Unknown]
  - Hydrocephalus [Recovered/Resolved with Sequelae]
  - Cerebral haematoma [Recovered/Resolved with Sequelae]
  - Cerebral ventricle collapse [Recovered/Resolved with Sequelae]
  - Colostomy [Unknown]
  - General physical health deterioration [Unknown]

NARRATIVE: CASE EVENT DATE: 20161027
